FAERS Safety Report 16212058 (Version 1)
Quarter: 2019Q2

REPORT INFORMATION
  Report Type: Spontaneous
  Country: BR (occurrence: BR)
  Receive Date: 20190418
  Receipt Date: 20190418
  Transmission Date: 20190711
  Serious: Yes (Other)
  Sender: FDA-Public Use
  Company Number: BR-ABBVIE-19K-020-2743642-00

PATIENT
  Age: 48 Year
  Sex: Male
  Weight: 70 kg

DRUGS (7)
  1. TIMOLOL. [Concomitant]
     Active Substance: TIMOLOL
     Indication: INTRAOCULAR PRESSURE INCREASED
     Dates: start: 2015
  2. AZATHIOPRINE. [Concomitant]
     Active Substance: AZATHIOPRINE
     Indication: AUTOIMMUNE UVEITIS
     Route: 048
     Dates: start: 2016
  3. DORZOLAMIDE [Concomitant]
     Active Substance: DORZOLAMIDE
     Indication: INTRAOCULAR PRESSURE INCREASED
     Dosage: 1 DROP IN THE LEFT EYE
     Dates: start: 2015
  4. BRIMONIDINE [Concomitant]
     Active Substance: BRIMONIDINE TARTRATE
     Indication: INTRAOCULAR PRESSURE INCREASED
     Dosage: 1 DROP IN EACH EYE EVERY 12 HOURS
     Dates: start: 2015
  5. CLONAZEPAM. [Concomitant]
     Active Substance: CLONAZEPAM
     Indication: SLEEP DISORDER THERAPY
     Dosage: A HALF EVERY DAY
     Dates: start: 2015
  6. HUMIRA [Suspect]
     Active Substance: ADALIMUMAB
     Indication: RHEUMATOID ARTHRITIS
     Route: 058
     Dates: start: 2017
  7. DIAMOX SEQUELS [Suspect]
     Active Substance: ACETAZOLAMIDE
     Indication: INTRAOCULAR PRESSURE INCREASED
     Route: 065

REACTIONS (16)
  - Urine analysis abnormal [Unknown]
  - Injection site vesicles [Recovering/Resolving]
  - Intraocular pressure increased [Unknown]
  - Blood creatinine abnormal [Unknown]
  - Therapeutic response unexpected [Recovering/Resolving]
  - Hypertension [Unknown]
  - Uveitis [Recovered/Resolved]
  - Blood gases abnormal [Unknown]
  - Vasculitis [Recovered/Resolved]
  - Dyspepsia [Unknown]
  - Injection site mass [Recovered/Resolved]
  - Blindness unilateral [Unknown]
  - Renal impairment [Unknown]
  - Blood urea abnormal [Unknown]
  - Pre-existing condition improved [Recovering/Resolving]
  - Injection site pain [Recovering/Resolving]

NARRATIVE: CASE EVENT DATE: 2017
